FAERS Safety Report 5990629-1 (Version None)
Quarter: 2008Q4

REPORT INFORMATION
  Report Type: 
  Country: None (occurrence: None)
  Receive Date: 20081211
  Receipt Date: 20081205
  Transmission Date: 20090506
  Serious: Yes (Death)
  Sender: FDA-Public Use
  Company Number: B0549568A

PATIENT
  Age: 88 Year
  Sex: Male

DRUGS (11)
  1. ZINACEF [Suspect]
     Route: 042
     Dates: start: 20080205, end: 20080206
  2. KEFEXIN [Suspect]
     Dosage: 750MG THREE TIMES PER DAY
     Route: 048
     Dates: start: 20080206, end: 20080218
  3. KALCIPOS-D [Concomitant]
     Indication: OSTEOPOROSIS
     Dosage: 1TAB PER DAY
     Route: 048
     Dates: start: 20060925, end: 20080218
  4. ARICEPT [Concomitant]
     Dosage: 1TAB PER DAY
     Route: 048
     Dates: start: 20060925, end: 20080218
  5. HALOPERIDOL [Concomitant]
     Indication: RESTLESSNESS
     Dosage: 1TAB PER DAY
     Route: 048
     Dates: start: 20060925, end: 20080218
  6. OXYTOCIN [Concomitant]
     Indication: PAIN
     Dosage: 2TAB TWICE PER DAY
     Route: 048
     Dates: start: 20051129, end: 20080218
  7. TIZANIDINE HCL [Concomitant]
     Indication: PAIN
     Dosage: 1TAB THREE TIMES PER DAY
     Route: 048
     Dates: start: 20060925, end: 20080218
  8. MAREVAN [Concomitant]
     Indication: ATRIAL FIBRILLATION
     Route: 048
     Dates: start: 20060830, end: 20080218
  9. ORLOC [Concomitant]
     Indication: ATRIAL FIBRILLATION
     Dosage: 1TAB PER DAY
     Route: 065
     Dates: start: 20060925, end: 20080218
  10. FURESIS [Concomitant]
     Dosage: 1TAB PER DAY
     Route: 065
     Dates: start: 20070902, end: 20080218
  11. ORMOX [Concomitant]
     Indication: CORONARY ARTERY DISEASE
     Dosage: 2TAB PER DAY
     Route: 065
     Dates: start: 20060925, end: 20080218

REACTIONS (3)
  - CLOSTRIDIAL INFECTION [None]
  - DIARRHOEA [None]
  - GASTROENTERITIS [None]
